FAERS Safety Report 9148416 (Version 4)
Quarter: 2013Q3

REPORT INFORMATION
  Report Type: Report from Study
  Country: CA (occurrence: CA)
  Receive Date: 20130308
  Receipt Date: 20130904
  Transmission Date: 20140515
  Serious: No
  Sender: FDA-Public Use
  Company Number: PHHY2013CA022757

PATIENT
  Age: 44 Year
  Sex: Female

DRUGS (7)
  1. TASIGNA [Suspect]
     Indication: CHRONIC MYELOID LEUKAEMIA
     Dosage: 300 MG, BID
     Route: 048
     Dates: start: 201211
  2. TASIGNA [Suspect]
     Dosage: 150 MG, BID
     Route: 048
  3. TASIGNA [Suspect]
     Dosage: 300 MG, BID
     Route: 048
  4. SYNTHROID [Concomitant]
  5. MULTIVITAMINS [Concomitant]
  6. VITAMIN D [Concomitant]
     Dosage: 5000 U, QD
  7. CALCIUM [Concomitant]

REACTIONS (13)
  - Rash papular [Recovering/Resolving]
  - Epigastric discomfort [Unknown]
  - Dyspepsia [Recovered/Resolved]
  - Headache [Not Recovered/Not Resolved]
  - Abdominal pain [Recovered/Resolved]
  - Hepatic enzyme increased [Unknown]
  - Platelet count decreased [Unknown]
  - Bone pain [Recovered/Resolved]
  - Nausea [Unknown]
  - Abdominal distension [Unknown]
  - Abdominal pain upper [Recovered/Resolved]
  - Fatigue [Unknown]
  - Rash [Unknown]
